FAERS Safety Report 12769921 (Version 1)
Quarter: 2016Q3

REPORT INFORMATION
  Report Type: Spontaneous
  Country: GB (occurrence: GB)
  Receive Date: 20160922
  Receipt Date: 20160922
  Transmission Date: 20161109
  Serious: Yes (Other)
  Sender: FDA-Public Use
  Company Number: GB-TEVA-693279ACC

PATIENT
  Age: 37 Year
  Sex: Male
  Weight: 65 kg

DRUGS (3)
  1. QUETIAPINE FUMARATE. [Suspect]
     Active Substance: QUETIAPINE FUMARATE
     Indication: GENERALISED ANXIETY DISORDER
     Route: 048
     Dates: start: 20141120, end: 20160720
  2. PAROXETINE. [Concomitant]
     Active Substance: PAROXETINE
  3. BUSPIRONE [Concomitant]
     Active Substance: BUSPIRONE HYDROCHLORIDE

REACTIONS (7)
  - Asthma [Unknown]
  - Nasal congestion [Unknown]
  - Sneezing [Unknown]
  - Withdrawal syndrome [Recovered/Resolved with Sequelae]
  - Histamine level increased [Recovering/Resolving]
  - Pruritus [Unknown]
  - Eye irritation [Unknown]

NARRATIVE: CASE EVENT DATE: 20160718
